FAERS Safety Report 14204231 (Version 2)
Quarter: 2017Q4

REPORT INFORMATION
  Report Type: Report from Study
  Country: US (occurrence: US)
  Receive Date: 20171120
  Receipt Date: 20171205
  Transmission Date: 20180321
  Serious: Yes (Hospitalization)
  Sender: FDA-Public Use
  Company Number: US-BRISTOL-MYERS SQUIBB COMPANY-BMS-2017-103906

PATIENT
  Sex: Female

DRUGS (2)
  1. IPILIMUMAB [Suspect]
     Active Substance: IPILIMUMAB
     Indication: INTRAOCULAR MELANOMA
     Dosage: 3 MG/KG, Q2WK
     Route: 042
     Dates: start: 20171023
  2. NIVOLUMAB [Suspect]
     Active Substance: NIVOLUMAB
     Indication: INTRAOCULAR MELANOMA
     Dosage: 1 MG/KG, Q3WK
     Route: 042
     Dates: start: 20171023

REACTIONS (2)
  - Hepatobiliary disease [Unknown]
  - Hepatic pain [Unknown]

NARRATIVE: CASE EVENT DATE: 20171113
